FAERS Safety Report 21869707 (Version 1)
Quarter: 2023Q1

REPORT INFORMATION
  Report Type: Other
  Country: ID (occurrence: ID)
  Receive Date: 20230117
  Receipt Date: 20230117
  Transmission Date: 20230417
  Serious: Yes (Death, Hospitalization)
  Sender: FDA-Public Use
  Company Number: ID-BoehringerIngelheim-2023-BI-211539

PATIENT
  Age: 62 Year
  Sex: Male

DRUGS (1)
  1. ALTEPLASE [Suspect]
     Active Substance: ALTEPLASE
     Indication: Ischaemic stroke
     Route: 042

REACTIONS (4)
  - Respiratory failure [Fatal]
  - Dyspnoea [Unknown]
  - Lung infiltration [Unknown]
  - Cystic lung disease [Unknown]
